FAERS Safety Report 9787864 (Version 2)
Quarter: 2014Q1

REPORT INFORMATION
  Report Type: Spontaneous
  Country: JP (occurrence: JP)
  Receive Date: 20131230
  Receipt Date: 20140303
  Transmission Date: 20141002
  Serious: Yes (Death, Life-Threatening, Disabling, Other)
  Sender: FDA-Public Use
  Company Number: JP-JNJFOC-20131214830

PATIENT
  Age: 81 Year
  Sex: Female
  Weight: 59 kg

DRUGS (5)
  1. XARELTO [Suspect]
     Indication: CEREBROVASCULAR ACCIDENT PROPHYLAXIS
     Route: 048
     Dates: start: 20131129, end: 20131202
  2. VASOLAN [Concomitant]
     Route: 048
     Dates: start: 20131129
  3. LASIX [Concomitant]
     Route: 048
  4. SELARA (EPLERENONE) [Concomitant]
     Route: 048
  5. MAINTATE [Concomitant]
     Route: 048

REACTIONS (2)
  - Cerebral infarction [Fatal]
  - Pneumonia [Fatal]
